FAERS Safety Report 9507873 (Version 2)
Quarter: 2013Q3

REPORT INFORMATION
  Report Type: Spontaneous
  Country: BR (occurrence: BR)
  Receive Date: 20130909
  Receipt Date: 20130909
  Transmission Date: 20140515
  Serious: Yes (Other)
  Sender: FDA-Public Use
  Company Number: BR-PFIZER INC-2013251805

PATIENT
  Sex: Male

DRUGS (4)
  1. EFEXOR XR [Suspect]
     Dosage: UNK
  2. FLUOXETINE HCL [Suspect]
     Dosage: UNK
  3. SERTRALINE HCL [Suspect]
     Dosage: UNK
  4. QUETIAPINE FUMARATE [Suspect]
     Dosage: UNK

REACTIONS (2)
  - Major depression [Not Recovered/Not Resolved]
  - Drug ineffective [Unknown]
